FAERS Safety Report 6786011-X (Version None)
Quarter: 2010Q2

REPORT INFORMATION
  Report Type: 
  Country: None (occurrence: None)
  Receive Date: 20100621
  Receipt Date: 20100621
  Transmission Date: 20101027
  Serious: Yes (Life-Threatening, Hospitalization, Other)
  Sender: FDA-Public Use
  Company Number: None

PATIENT
  Age: 45 Year
  Sex: Female
  Weight: 56.6996 kg

DRUGS (2)
  1. KLONOPIN [Suspect]
     Indication: ANXIETY
     Dosage: .5 INITIALLY, THEN 2.5 ONCE A DAY
     Dates: start: 20050415, end: 20091017
  2. KLONOPIN [Suspect]
     Indication: INSOMNIA
     Dosage: .5 INITIALLY, THEN 2.5 ONCE A DAY
     Dates: start: 20050415, end: 20091017

REACTIONS (26)
  - ANXIETY [None]
  - BLOOD PRESSURE DECREASED [None]
  - BRAIN INJURY [None]
  - DRUG PRESCRIBING ERROR [None]
  - EPISTAXIS [None]
  - EYE DISORDER [None]
  - FEELING ABNORMAL [None]
  - GAIT DISTURBANCE [None]
  - HYPERACUSIS [None]
  - HYPERTENSION [None]
  - HYPOAESTHESIA [None]
  - IATROGENIC INJURY [None]
  - IMPAIRED WORK ABILITY [None]
  - MUSCLE TIGHTNESS [None]
  - NASAL POLYPS [None]
  - PAIN [None]
  - PANIC ATTACK [None]
  - PARADOXICAL DRUG REACTION [None]
  - PHOTOPHOBIA [None]
  - PRODUCT LABEL ISSUE [None]
  - PRODUCT QUALITY ISSUE [None]
  - SENSORY DISTURBANCE [None]
  - SLEEP DISORDER [None]
  - SYNCOPE [None]
  - TREMOR [None]
  - WITHDRAWAL SYNDROME [None]
